FAERS Safety Report 9524494 (Version 1)
Quarter: 2013Q3

REPORT INFORMATION
  Report Type: Spontaneous
  Country: US (occurrence: US)
  Receive Date: 20130916
  Receipt Date: 20130916
  Transmission Date: 20140515
  Serious: No
  Sender: FDA-Public Use
  Company Number: US-PFIZER INC-2013261740

PATIENT
  Age: 80 Year
  Sex: Female
  Weight: 63.5 kg

DRUGS (8)
  1. XALKORI [Suspect]
     Indication: LUNG NEOPLASM MALIGNANT
     Dosage: 250 MG, 2X/DAY
     Route: 048
  2. FUROSEMIDE [Concomitant]
     Dosage: 40 MG, UNK
  3. ZOMETA [Concomitant]
     Dosage: 4MG/5ML, UNK
  4. ONDANSETRON [Concomitant]
     Dosage: 4 MG, UNK
  5. VENTOLIN [Concomitant]
     Dosage: UNK
  6. CALCIUM [Concomitant]
     Dosage: UNK
  7. VITAMIN C [Concomitant]
     Dosage: 500 MG, UNK
  8. MULTIVITAMINS [Concomitant]

REACTIONS (3)
  - Ear pain [Unknown]
  - Pain in jaw [Unknown]
  - Odynophagia [Unknown]
